FAERS Safety Report 4930975-3 (Version None)
Quarter: 2006Q1

REPORT INFORMATION
  Report Type: 
  Country: None (occurrence: None)
  Receive Date: 20060227
  Receipt Date: 20060214
  Transmission Date: 20060701
  Serious: Yes (Other)
  Sender: FDA-Public Use
  Company Number: GXKR2006JP00956

PATIENT
  Age: 63 Year
  Sex: Female

DRUGS (3)
  1. ETHAMBUTOL HCL [Suspect]
     Indication: ATYPICAL MYCOBACTERIAL INFECTION
     Dosage: 750 MG, QD
     Dates: start: 19990901, end: 20000701
  2. ISONIAZID [Suspect]
     Indication: ATYPICAL MYCOBACTERIAL INFECTION
     Dosage: 400 MG, QD
     Dates: start: 19990901
  3. RIFAMPICIN [Suspect]
     Indication: ATYPICAL MYCOBACTERIAL INFECTION
     Dosage: 450 MG, QD
     Dates: start: 19990901

REACTIONS (6)
  - ANAEMIA [None]
  - CATARACT [None]
  - HEMIANOPIA HETERONYMOUS [None]
  - OPTIC NEUROPATHY [None]
  - VISUAL ACUITY REDUCED [None]
  - VISUAL FIELD DEFECT [None]
